FAERS Safety Report 12190200 (Version 1)
Quarter: 2016Q1

REPORT INFORMATION
  Report Type: Spontaneous
  Country: FR (occurrence: FR)
  Receive Date: 20160318
  Receipt Date: 20160318
  Transmission Date: 20160526
  Serious: Yes (Life-Threatening)
  Sender: FDA-Public Use
  Company Number: FR-TEVA-643847ISR

PATIENT
  Age: 74 Year
  Sex: Male

DRUGS (9)
  1. ENDOXAN [Suspect]
     Active Substance: CYCLOPHOSPHAMIDE
     Indication: DIFFUSE LARGE B-CELL LYMPHOMA STAGE IV
     Dosage: CHOP PROTOCOL
     Route: 042
     Dates: start: 20160114
  2. MABTHERA [Suspect]
     Active Substance: RITUXIMAB
     Indication: DIFFUSE LARGE B-CELL LYMPHOMA STAGE IV
     Dosage: R-CHOP PROTOCOL
     Route: 042
     Dates: start: 20160121
  3. VINCRISTINE HOSPIRA [Suspect]
     Active Substance: VINCRISTINE
     Dosage: R-CHOP PROTOCOL
     Route: 042
     Dates: start: 20160121
  4. PREDNISONE. [Concomitant]
     Active Substance: PREDNISONE
     Dosage: R-CHOP PROTOCOL
     Dates: start: 20160121
  5. DOXORUBICINE TEVA [Suspect]
     Active Substance: DOXORUBICIN
     Dosage: R-CHOP PROTOCOL
     Route: 042
     Dates: start: 20160121
  6. DOXORUBICINE TEVA [Suspect]
     Active Substance: DOXORUBICIN
     Indication: DIFFUSE LARGE B-CELL LYMPHOMA STAGE IV
     Dosage: CHOP PROTOCOL
     Route: 042
     Dates: start: 20160114
  7. ENDOXAN [Suspect]
     Active Substance: CYCLOPHOSPHAMIDE
     Dosage: R-CHOP PROTOCOL
     Route: 042
     Dates: start: 20160121
  8. VINCRISTINE HOSPIRA [Suspect]
     Active Substance: VINCRISTINE
     Indication: DIFFUSE LARGE B-CELL LYMPHOMA STAGE IV
     Dosage: CHOP PROTOCOL
     Route: 042
     Dates: start: 20160114
  9. PREDNISONE. [Concomitant]
     Active Substance: PREDNISONE
     Indication: DIFFUSE LARGE B-CELL LYMPHOMA STAGE IV
     Dosage: CHOP PROTOCOL
     Dates: start: 20160114

REACTIONS (2)
  - Thrombocytopenia [Recovering/Resolving]
  - Agranulocytosis [Recovered/Resolved]

NARRATIVE: CASE EVENT DATE: 20160129
